FAERS Safety Report 16513750 (Version 2)
Quarter: 2019Q3

REPORT INFORMATION
  Report Type: Report from Study
  Country: CN (occurrence: CN)
  Receive Date: 20190701
  Receipt Date: 20190826
  Transmission Date: 20191004
  Serious: Yes (Hospitalization)
  Sender: FDA-Public Use
  Company Number: CN-TAKEDA-2019TUS026689

PATIENT
  Age: 52 Year
  Sex: Male
  Weight: 65 kg

DRUGS (7)
  1. KETOTIFEN [Concomitant]
     Active Substance: KETOTIFEN
     Indication: DRUG ERUPTION
     Dosage: UNK UNK, QD
     Route: 048
     Dates: start: 20190406
  2. LEVOFLOXACIN. [Concomitant]
     Active Substance: LEVOFLOXACIN
     Indication: BRONCHITIS
     Dosage: UNK UNK, BID
     Route: 048
     Dates: start: 20190407
  3. VITAMIN C [Concomitant]
     Active Substance: ASCORBIC ACID
     Dosage: 2 GRAM, QD
     Route: 042
     Dates: start: 20190410, end: 20190426
  4. CEFDINIR. [Concomitant]
     Active Substance: CEFDINIR
     Indication: BRONCHITIS
     Dosage: UNK UNK, TID
     Route: 048
     Dates: start: 20190403, end: 20190406
  5. VEDOLIZUMAB [Suspect]
     Active Substance: VEDOLIZUMAB
     Indication: CROHN^S DISEASE
     Dosage: UNK
     Route: 042
     Dates: start: 20180416, end: 20190426
  6. AZATHIOPRINE. [Concomitant]
     Active Substance: AZATHIOPRINE
     Indication: CROHN^S DISEASE
     Dosage: 75 MILLIGRAM, QD
     Route: 048
     Dates: start: 20180316
  7. CARBOCISTEINE [Concomitant]
     Active Substance: CARBOCYSTEINE
     Indication: BRONCHITIS
     Dosage: 10 MILLILITER, TID
     Route: 048
     Dates: start: 20190403, end: 20190406

REACTIONS (1)
  - Abdominal pain [Recovered/Resolved]

NARRATIVE: CASE EVENT DATE: 20190420
